FAERS Safety Report 9964176 (Version 2)
Quarter: 2014Q1

REPORT INFORMATION
  Report Type: Report from Study
  Country: US (occurrence: US)
  Receive Date: 20140305
  Receipt Date: 20140326
  Transmission Date: 20141002
  Serious: Yes (Hospitalization, Other)
  Sender: FDA-Public Use
  Company Number: US-GILEAD-2014-0095836

PATIENT
  Age: 70 Year
  Sex: Female
  Weight: 58.9 kg

DRUGS (10)
  1. AMBRISENTAN [Suspect]
     Indication: PULMONARY ARTERIAL HYPERTENSION
     Dosage: 10 MG, QD
     Route: 048
     Dates: start: 20110607, end: 20130506
  2. TADALAFIL [Suspect]
     Indication: PULMONARY ARTERIAL HYPERTENSION
     Dosage: 40 MG, QD
     Route: 048
     Dates: start: 20110607, end: 20130506
  3. ACETAMINOPHEN [Concomitant]
     Indication: PYREXIA
     Dosage: 325 MG, PRN
     Route: 048
     Dates: start: 20130605
  4. HEPARIN [Concomitant]
     Indication: COAGULOPATHY
     Dosage: 5000UNIT THREE TIMES PER DAY
     Route: 058
     Dates: start: 20130605, end: 20130609
  5. DEXTROSE [Concomitant]
     Indication: FLUID REPLACEMENT
     Dosage: 50 ML, PRN
     Route: 042
     Dates: start: 20130605, end: 20130605
  6. FLUTICASONE                        /00972202/ [Concomitant]
     Indication: NASAL CONGESTION
     Dosage: 50 ?G, QD
     Route: 045
  7. OMEPRAZOLE [Concomitant]
     Dosage: 40 MG, BID
     Route: 048
     Dates: start: 20130605, end: 20130609
  8. TRAMADOL                           /00599202/ [Concomitant]
     Indication: PAIN
     Dosage: 25 MG, QID
     Route: 048
     Dates: start: 2005
  9. INSULIN [Concomitant]
     Indication: DIABETES MELLITUS
     Dosage: 4UNIT AS REQUIRED
     Route: 058
     Dates: start: 20130606, end: 20130609
  10. RAMIPRIL [Concomitant]
     Indication: HYPERTENSION
     Dosage: 5 MG, QD
     Route: 048
     Dates: start: 2002

REACTIONS (1)
  - Right ventricular failure [Recovered/Resolved]
